FAERS Safety Report 6930957-6 (Version None)
Quarter: 2010Q3

REPORT INFORMATION
  Report Type: 
  Country: None (occurrence: None)
  Receive Date: 20100818
  Receipt Date: 20100805
  Transmission Date: 20110219
  Serious: Yes (Hospitalization)
  Sender: FDA-Public Use
  Company Number: US-WATSON-2010-10871

PATIENT
  Age: 42 Year
  Sex: Female

DRUGS (2)
  1. HALOPERIDOL (WATSON LABORATORIES) [Suspect]
     Indication: MENTAL DISORDER
     Dosage: UNK
  2. AMITRIPTYLINE HYDROCHLORIDE [Suspect]
     Indication: MENTAL DISORDER
     Dosage: UNK

REACTIONS (6)
  - ELECTROCARDIOGRAM QT PROLONGED [None]
  - HYPOKALAEMIA [None]
  - HYPOMAGNESAEMIA [None]
  - LONG QT SYNDROME [None]
  - OVERDOSE [None]
  - TORSADE DE POINTES [None]
